FAERS Safety Report 5973346-3 (Version None)
Quarter: 2008Q4

REPORT INFORMATION
  Report Type: 
  Country: None (occurrence: None)
  Receive Date: 20081201
  Receipt Date: 20080115
  Transmission Date: 20090506
  Serious: No
  Sender: FDA-Public Use
  Company Number: US-AMGEN-KDL260782

PATIENT
  Sex: Male

DRUGS (4)
  1. ENBREL [Suspect]
     Indication: RHEUMATOID ARTHRITIS
     Route: 058
     Dates: start: 20010101
  2. METHOTREXATE [Concomitant]
     Dates: start: 19990101
  3. MINOCYCLINE HCL [Concomitant]
     Dates: start: 20000101
  4. PLAQUENIL [Concomitant]
     Dates: start: 19990101

REACTIONS (2)
  - PUNCTURE SITE INFECTION [None]
  - WOUND [None]
